FAERS Safety Report 9486895 (Version 5)
Quarter: 2014Q3

REPORT INFORMATION
  Report Type: Spontaneous
  Country: US (occurrence: None)
  Receive Date: 20130827
  Receipt Date: 20140911
  Transmission Date: 20150326
  Serious: Yes (Other)
  Sender: FDA-Public Use
  Company Number: ADR-2013-01161

PATIENT
  Age: 61 Year
  Sex: Female

DRUGS (2)
  1. BENADRYL [Concomitant]
     Active Substance: DIPHENHYDRAMINE HYDROCHLORIDE
  2. BACLOFEN. [Suspect]
     Active Substance: BACLOFEN
     Indication: MUSCLE SPASTICITY

REACTIONS (14)
  - Malaise [None]
  - Paraesthesia [None]
  - Medical device complication [None]
  - Hypoaesthesia [None]
  - Unresponsive to stimuli [None]
  - Overdose [None]
  - Cerebrovascular accident [None]
  - Vision blurred [None]
  - Hypoaesthesia oral [None]
  - Paraesthesia oral [None]
  - Blood pressure increased [None]
  - Sedation [None]
  - Device damage [None]
  - Device physical property issue [None]

NARRATIVE: CASE EVENT DATE: 20130628
